FAERS Safety Report 15009602 (Version 1)
Quarter: 2018Q2

REPORT INFORMATION
  Report Type: Spontaneous
  Country: FR (occurrence: FR)
  Receive Date: 20180614
  Receipt Date: 20180614
  Transmission Date: 20180711
  Serious: Yes (Other)
  Sender: FDA-Public Use
  Company Number: FR-MERCK KGAA-2049399

PATIENT
  Age: 49 Year
  Sex: Female
  Weight: 49 kg

DRUGS (1)
  1. NOVOTHYROX [Suspect]
     Active Substance: LEVOTHYROXINE SODIUM
     Indication: HYPOTHYROIDISM
     Route: 048
     Dates: start: 201707, end: 20180320

REACTIONS (7)
  - Depressed mood [Recovered/Resolved]
  - Arthralgia [Recovered/Resolved]
  - Vertigo [Recovered/Resolved]
  - Tendonitis [Recovered/Resolved]
  - Muscular weakness [Recovered/Resolved]
  - Gastrointestinal motility disorder [Recovered/Resolved]
  - Blood thyroid stimulating hormone normal [Recovered/Resolved]

NARRATIVE: CASE EVENT DATE: 201710
